FAERS Safety Report 4865090-0 (Version None)
Quarter: 2005Q4

REPORT INFORMATION
  Report Type: 
  Country: None (occurrence: None)
  Receive Date: 20051220
  Receipt Date: 20051220
  Transmission Date: 20060501
  Serious: Yes (Hospitalization, Other)
  Sender: FDA-Public Use
  Company Number: None

PATIENT
  Sex: Female
  Weight: 73.3 kg

DRUGS (6)
  1. VINORELBINE TARTRATE [Suspect]
     Indication: SQUAMOUS CELL CARCINOMA OF THE CERVIX
     Dosage: SEE IMAGE
     Route: 042
     Dates: start: 20051129
  2. CISPLATIN [Suspect]
     Dosage: SEE IMAGE
     Route: 042
     Dates: start: 20051129, end: 20051129
  3. DEXAMETHASONE [Concomitant]
  4. MAXZIDE [Concomitant]
  5. REGLAN [Concomitant]
  6. WARFARIN [Concomitant]

REACTIONS (16)
  - ASTHENIA [None]
  - BACTERIA URINE [None]
  - BACTERIA URINE IDENTIFIED [None]
  - BLOOD POTASSIUM DECREASED [None]
  - CHILLS [None]
  - COLD SWEAT [None]
  - COUGH [None]
  - DYSURIA [None]
  - FATIGUE [None]
  - NAUSEA [None]
  - NEUTROPENIA [None]
  - PYREXIA [None]
  - RED BLOOD CELLS URINE [None]
  - URINE ANALYSIS ABNORMAL [None]
  - WHITE BLOOD CELL COUNT DECREASED [None]
  - WHITE BLOOD CELLS URINE POSITIVE [None]
